FAERS Safety Report 21615845 (Version 1)
Quarter: 2022Q4

REPORT INFORMATION
  Report Type: Spontaneous
  Country: CN (occurrence: CN)
  Receive Date: 20221118
  Receipt Date: 20221118
  Transmission Date: 20230112
  Serious: Yes (Hospitalization, Other)
  Sender: FDA-Public Use
  Company Number: None

PATIENT
  Age: 60 Year
  Sex: Female
  Weight: 72 kg

DRUGS (6)
  1. CYCLOPHOSPHAMIDE [Suspect]
     Active Substance: CYCLOPHOSPHAMIDE
     Indication: Neoplasm malignant
     Dosage: (DOSAGE FORM:INJECTION) 10100 MG ,QD , INTRA-PUMP INJECTION (DILUTED WITH SODOIUM CHLORIDE INJECTION
     Route: 050
     Dates: start: 20221027, end: 20221027
  2. SODIUM CHLORIDE [Suspect]
     Active Substance: SODIUM CHLORIDE
     Indication: Medication dilution
     Dosage: 100 ML, QD, INTRA-PUMP INJECTION (USED TO DILUTE 100 MG OF EPIRUBICIN)
     Route: 050
     Dates: start: 20221027, end: 20221027
  3. EPIRUBICIN HYDROCHLORIDE [Suspect]
     Active Substance: EPIRUBICIN HYDROCHLORIDE
     Indication: Neoplasm malignant
     Dosage: 100 MG, QD, INTRA-PUMP INJECTION (DILUTED WITH SODIUM CHLORIDE 100 ML)
     Route: 050
     Dates: start: 20221027, end: 20221027
  4. EPIRUBICIN HYDROCHLORIDE [Suspect]
     Active Substance: EPIRUBICIN HYDROCHLORIDE
     Dosage: 50 MG, QD, INTRA-PUMP INJECTION (DILUTED WITH SODIUM CHLORIDE INJECTION 100 ML)
     Route: 050
     Dates: start: 20221028, end: 20221028
  5. SODIUM CHLORIDE [Concomitant]
     Active Substance: SODIUM CHLORIDE
     Indication: Vehicle solution use
     Dosage: 100 ML, QD, INTRA-PUMP INJECTION (USED TO DILUTE 10100 MG OF CYCLOPHOSPHAMIDE)
     Route: 050
     Dates: start: 20221027, end: 20221027
  6. SODIUM CHLORIDE [Concomitant]
     Active Substance: SODIUM CHLORIDE
     Dosage: 100 ML, QD, INTRA-PUMP INJECTION (USED TO DILUTE 50 MG OF EPIRUBICIN)
     Route: 050
     Dates: start: 20221028, end: 20221028

REACTIONS (1)
  - Myelosuppression [Recovering/Resolving]

NARRATIVE: CASE EVENT DATE: 20221031
